FAERS Safety Report 11857899 (Version 1)
Quarter: 2015Q4

REPORT INFORMATION
  Report Type: Spontaneous
  Country: FR (occurrence: FR)
  Receive Date: 20151222
  Receipt Date: 20151222
  Transmission Date: 20160305
  Serious: Yes (Other)
  Sender: FDA-Public Use
  Company Number: FR-009507513-1512FRA010557

PATIENT
  Age: 57 Year
  Sex: Female

DRUGS (4)
  1. CORTANCYL [Suspect]
     Active Substance: PREDNISONE
     Indication: PREMEDICATION
     Dosage: ELEVENTH CYCLE 60 MG, UNK
     Route: 048
     Dates: start: 20151118, end: 20151202
  2. EMEND [Suspect]
     Active Substance: APREPITANT
     Indication: PREMEDICATION
     Dosage: ELEVENTH CYCLE 125 MG, UNK
     Route: 048
     Dates: start: 20151118, end: 20151202
  3. ZOPHREN (ONDANSETRON HYDROCHLORIDE) [Suspect]
     Active Substance: ONDANSETRON HYDROCHLORIDE
     Indication: PREMEDICATION
     Dosage: ELEVENTH CYCLE 8 MG, UNK
     Route: 048
     Dates: start: 20151118, end: 20151202
  4. OXALIPLATIN. [Suspect]
     Active Substance: OXALIPLATIN
     Indication: NEOPLASM MALIGNANT
     Dosage: ELEVENTH CYCLE 85 MG/M2, UNK
     Route: 042
     Dates: start: 20151118, end: 20151202

REACTIONS (2)
  - Generalised erythema [Recovering/Resolving]
  - Rash generalised [Recovering/Resolving]

NARRATIVE: CASE EVENT DATE: 20151202
